FAERS Safety Report 4326196-8 (Version None)
Quarter: 2004Q1

REPORT INFORMATION
  Report Type: 
  Country: None (occurrence: None)
  Receive Date: 20040324
  Receipt Date: 20040316
  Transmission Date: 20041129
  Serious: Yes (Hospitalization)
  Sender: FDA-Public Use
  Company Number: 04P-008-0250795-00

PATIENT
  Age: 40 Year
  Sex: Male
  Weight: 109 kg

DRUGS (1)
  1. MERIDIA [Suspect]
     Indication: OBESITY
     Dosage: 10 MG, 1 IN 1 D, PER ORAL
     Route: 048
     Dates: start: 20031213, end: 20040213

REACTIONS (3)
  - ABDOMINAL DISTENSION [None]
  - CHOLECYSTITIS ACUTE [None]
  - OESOPHAGEAL SPASM [None]
